FAERS Safety Report 9955070 (Version 2)
Quarter: 2014Q2

REPORT INFORMATION
  Report Type: Spontaneous
  Country: DE (occurrence: DE)
  Receive Date: 20140304
  Receipt Date: 20140603
  Transmission Date: 20141212
  Serious: Yes (Hospitalization)
  Sender: FDA-Public Use
  Company Number: DE-GILEAD-2014-0095780

PATIENT
  Age: 59 Year
  Sex: Female
  Weight: 42 kg

DRUGS (3)
  1. AMBRISENTAN [Suspect]
     Indication: PULMONARY HYPERTENSION
     Dosage: 5MG PER DAY
     Route: 048
  2. TADALAFIL [Concomitant]
     Indication: PULMONARY ARTERIAL HYPERTENSION
     Dosage: 20MG PER DAY
     Route: 065
     Dates: start: 2011
  3. MARCUMAR [Concomitant]
     Indication: PULMONARY ARTERIAL HYPERTENSION
     Route: 065

REACTIONS (3)
  - Malaise [Recovered/Resolved]
  - Vertigo [Recovered/Resolved]
  - Tinnitus [Recovered/Resolved]
